APPROVED DRUG PRODUCT: ABLYSINOL
Active Ingredient: DEHYDRATED ALCOHOL
Strength: 99% (5ML)
Dosage Form/Route: SOLUTION;INTRA-ARTERIAL
Application: N207987 | Product #002 | TE Code: AP
Applicant: BPI LABS LLC
Approved: Jun 21, 2018 | RLD: Yes | RS: Yes | Type: RX